FAERS Safety Report 15308220 (Version 1)
Quarter: 2018Q3

REPORT INFORMATION
  Report Type: Report from Study
  Country: CN (occurrence: CN)
  Receive Date: 20180822
  Receipt Date: 20180822
  Transmission Date: 20181010
  Serious: Yes (Hospitalization)
  Sender: FDA-Public Use
  Company Number: CN-ASTRAZENECA-2018SE80827

PATIENT
  Age: 18364 Day
  Sex: Male

DRUGS (18)
  1. CISPLATIN. [Suspect]
     Active Substance: CISPLATIN
     Indication: SMALL CELL LUNG CANCER
     Dosage: 70 MG/M2
     Route: 065
     Dates: start: 20180705, end: 20180705
  2. ETOPOSIDE. [Suspect]
     Active Substance: ETOPOSIDE
     Indication: SMALL CELL LUNG CANCER
     Dosage: 179 MG/M2
     Route: 065
     Dates: start: 20180614, end: 20180614
  3. MANNITOL. [Concomitant]
     Active Substance: MANNITOL
     Indication: PROPHYLAXIS
     Route: 042
     Dates: start: 20180614, end: 20180615
  4. ETOPOSIDE. [Suspect]
     Active Substance: ETOPOSIDE
     Indication: SMALL CELL LUNG CANCER
     Dosage: 175 MG/M2
     Route: 065
     Dates: start: 20180705, end: 20180705
  5. ETOPOSIDE. [Suspect]
     Active Substance: ETOPOSIDE
     Indication: SMALL CELL LUNG CANCER
     Dosage: 175 MG/M2
     Route: 065
     Dates: start: 20180707, end: 20180707
  6. TROPISETRON HYDROCHLORIDE [Concomitant]
     Active Substance: TROPISETRON HYDROCHLORIDE
     Indication: PROPHYLAXIS
     Route: 042
     Dates: start: 20180614, end: 20180615
  7. MEDI4736 [Suspect]
     Active Substance: DURVALUMAB
     Indication: SMALL CELL LUNG CANCER
     Dosage: 1500 MG
     Route: 042
     Dates: start: 20180614, end: 20180614
  8. CISPLATIN. [Suspect]
     Active Substance: CISPLATIN
     Indication: SMALL CELL LUNG CANCER
     Dosage: 70 MG/M2
     Route: 065
     Dates: start: 20180614, end: 20180614
  9. ETOPOSIDE. [Suspect]
     Active Substance: ETOPOSIDE
     Indication: SMALL CELL LUNG CANCER
     Dosage: 179 MG/M2
     Route: 065
     Dates: start: 20180615, end: 20180615
  10. CISPLATIN. [Suspect]
     Active Substance: CISPLATIN
     Indication: SMALL CELL LUNG CANCER
     Dosage: 70 MG/M2
     Route: 065
     Dates: start: 20180615, end: 20180615
  11. DEXAMETHASONE SODIUM PHOSPHATE. [Concomitant]
     Active Substance: DEXAMETHASONE SODIUM PHOSPHATE
     Indication: PROPHYLAXIS
     Route: 042
     Dates: start: 20180614, end: 20180615
  12. APREPITANT. [Concomitant]
     Active Substance: APREPITANT
     Indication: PROPHYLAXIS
     Dosage: 3 CAPSULE DAILY
     Route: 048
     Dates: start: 20180614, end: 20180616
  13. ETOPOSIDE. [Suspect]
     Active Substance: ETOPOSIDE
     Indication: SMALL CELL LUNG CANCER
     Dosage: 175 MG/M2
     Route: 065
     Dates: start: 20180706, end: 20180706
  14. ZOLEDRONIC ACID [Concomitant]
     Active Substance: ZOLEDRONIC ACID
     Dosage: 4 MG ONCE A MONTH
     Route: 041
     Dates: start: 20180617
  15. FUROSEMIDE. [Concomitant]
     Active Substance: FUROSEMIDE
     Indication: PROPHYLAXIS
     Route: 042
     Dates: start: 20180614, end: 20180615
  16. ETOPOSIDE. [Suspect]
     Active Substance: ETOPOSIDE
     Indication: SMALL CELL LUNG CANCER
     Dosage: 179 MG/M2
     Route: 065
     Dates: start: 20180616, end: 20180616
  17. CISPLATIN. [Suspect]
     Active Substance: CISPLATIN
     Indication: SMALL CELL LUNG CANCER
     Dosage: 70 MG/M2
     Route: 065
     Dates: start: 20180706, end: 20180706
  18. IBUPROFEN. [Concomitant]
     Active Substance: IBUPROFEN
     Indication: PROPHYLAXIS
     Route: 042
     Dates: start: 20180616, end: 20180617

REACTIONS (1)
  - Adrenocortical insufficiency acute [Recovering/Resolving]

NARRATIVE: CASE EVENT DATE: 20180618
